FAERS Safety Report 9390346 (Version 7)
Quarter: 2014Q1

REPORT INFORMATION
  Report Type: Spontaneous
  Country: US (occurrence: US)
  Receive Date: 20130709
  Receipt Date: 20140321
  Transmission Date: 20141002
  Serious: Yes (Death, Hospitalization, Other)
  Sender: FDA-Public Use
  Company Number: US-JNJFOC-20130701667

PATIENT
  Sex: Female
  Weight: 80.74 kg

DRUGS (2)
  1. EXTRA STRENGTH TYLENOL PM [Suspect]
     Indication: PAIN
     Route: 048
  2. EXTRA STRENGTH TYLENOL PM [Suspect]
     Indication: HEADACHE
     Route: 048

REACTIONS (8)
  - Cardio-respiratory arrest [Unknown]
  - Ischaemic hepatitis [Unknown]
  - Coma [Unknown]
  - Acute hepatic failure [Fatal]
  - Renal failure acute [Fatal]
  - Overdose [Fatal]
  - Metabolic acidosis [Fatal]
  - Hypoxic-ischaemic encephalopathy [Fatal]
